FAERS Safety Report 25007201 (Version 1)
Quarter: 2025Q1

REPORT INFORMATION
  Report Type: Report from Study
  Country: IN (occurrence: IN)
  Receive Date: 20250225
  Receipt Date: 20250225
  Transmission Date: 20250408
  Serious: Yes (Hospitalization)
  Sender: ROCHE
  Company Number: IN-ROCHE-10000209936

PATIENT
  Age: 64 Year
  Sex: Female

DRUGS (1)
  1. PHESGO [Suspect]
     Active Substance: HYALURONIDASE-ZZXF\PERTUZUMAB\TRASTUZUMAB
     Indication: Breast cancer
     Route: 058
     Dates: start: 20250103

REACTIONS (9)
  - Blood creatinine increased [Unknown]
  - Diarrhoea [Unknown]
  - Acute kidney injury [Unknown]
  - Vomiting [Unknown]
  - Dehydration [Unknown]
  - Kidney infection [Unknown]
  - Neutropenia [Unknown]
  - Renal disorder [Unknown]
  - C-reactive protein increased [Unknown]

NARRATIVE: CASE EVENT DATE: 20250108
